FAERS Safety Report 21557343 (Version 1)
Quarter: 2022Q4

REPORT INFORMATION
  Report Type: Spontaneous
  Country: GB (occurrence: GB)
  Receive Date: 20221105
  Receipt Date: 20221105
  Transmission Date: 20230113
  Serious: Yes (Other)
  Sender: FDA-Public Use
  Company Number: GB-MYLANLABS-2022M1116598

PATIENT
  Age: 72 Year
  Sex: Male

DRUGS (6)
  1. PREGABALIN [Suspect]
     Active Substance: PREGABALIN
     Indication: Product used for unknown indication
     Dosage: 2 DOSAGE FORM (DAILY DOSAGE: TWO, ROUTE: MOUTH, START DATE: MAY2022)
     Route: 048
     Dates: start: 202205
  2. GABAPENTIN [Suspect]
     Active Substance: GABAPENTIN
     Indication: Product used for unknown indication
     Dosage: 12 DOSAGE FORM, QD, 12 TABLETS/DAY
     Route: 065
  3. PFIZER-BIONTECH COVID-19 VACCINE [Suspect]
     Active Substance: TOZINAMERAN
     Indication: Product used for unknown indication
     Dosage: UNK, BOOSTER - DIFFERENT BRAND TO PRIMARY VACCINES
     Route: 065
     Dates: start: 20211111
  4. ASTRAZENECA COVID-19 VACCINE [Suspect]
     Active Substance: AZD-1222
     Indication: Product used for unknown indication
     Dosage: UNK, DOSE 1
     Route: 030
     Dates: start: 20210126
  5. ASTRAZENECA COVID-19 VACCINE [Suspect]
     Active Substance: AZD-1222
     Dosage: UNK, DOSE 2
     Route: 030
     Dates: start: 20210417
  6. LEVOTHYROXINE [Concomitant]
     Active Substance: LEVOTHYROXINE
     Indication: Product used for unknown indication
     Dosage: 1 DOSAGE FORM
     Route: 065
     Dates: start: 2020

REACTIONS (5)
  - Pain [Unknown]
  - Electric shock [Not Recovered/Not Resolved]
  - Paraesthesia [Not Recovered/Not Resolved]
  - Feeling abnormal [Not Recovered/Not Resolved]
  - Interchange of vaccine products [Unknown]

NARRATIVE: CASE EVENT DATE: 20210202
